FAERS Safety Report 8436785-7 (Version None)
Quarter: 2012Q2

REPORT INFORMATION
  Report Type: 
  Country: None (occurrence: None)
  Receive Date: 20120614
  Receipt Date: 20120612
  Transmission Date: 20120825
  Serious: Yes (Other)
  Sender: FDA-Public Use
  Company Number: CH-VERTEX PHARMACEUTICALS INC.-000000000000000012

PATIENT
  Sex: Male
  Weight: 101 kg

DRUGS (3)
  1. VX-950 [Suspect]
     Indication: HEPATITIS C
     Dosage: DOSAGE FORM: TABLET
     Route: 048
     Dates: start: 20111014, end: 20111216
  2. PEGASYS [Concomitant]
     Indication: HEPATITIS C
     Route: 065
     Dates: start: 20111014
  3. COPEGUS [Concomitant]
     Indication: HEPATITIS C
     Route: 065
     Dates: start: 20111014

REACTIONS (6)
  - DERMATITIS [None]
  - EPIDERMAL NECROSIS [None]
  - RASH MACULO-PAPULAR [None]
  - RASH [None]
  - PRURITUS [None]
  - SKIN EXFOLIATION [None]
